FAERS Safety Report 5663336-2 (Version None)
Quarter: 2008Q1

REPORT INFORMATION
  Report Type: 
  Country: None (occurrence: None)
  Receive Date: 20080313
  Receipt Date: 20080306
  Transmission Date: 20080703
  Serious: Yes (Hospitalization)
  Sender: FDA-Public Use
  Company Number: US-ELI_LILLY_AND_COMPANY-US200803001395

PATIENT
  Sex: Female
  Weight: 124.26 kg

DRUGS (8)
  1. BYETTA [Suspect]
     Dosage: 5 UG, 2/D
     Route: 058
     Dates: end: 20080227
  2. ACTOS [Concomitant]
     Dosage: UNK, UNKNOWN
  3. METFORMIN [Concomitant]
     Dosage: UNK, UNKNOWN
  4. ASPIRIN [Concomitant]
     Dosage: UNK, UNKNOWN
  5. CRESTOR [Concomitant]
     Dosage: UNK, UNKNOWN
  6. LEVOTHYROXINE SODIUM [Concomitant]
     Dosage: UNK, UNKNOWN
  7. LISINOPRIL [Concomitant]
     Dosage: UNK, UNKNOWN
  8. LANTUS [Concomitant]
     Dosage: UNK, UNKNOWN

REACTIONS (1)
  - PANCREATITIS ACUTE [None]
